FAERS Safety Report 5392238-4 (Version None)
Quarter: 2007Q3

REPORT INFORMATION
  Report Type: 
  Country: None (occurrence: None)
  Receive Date: 20070720
  Receipt Date: 20070716
  Transmission Date: 20080115
  Serious: Yes (Hospitalization, Disabling)
  Sender: FDA-Public Use
  Company Number: BE-ELI_LILLY_AND_COMPANY-BE200704002253

PATIENT
  Age: 84 Year
  Sex: Female
  Weight: 48.5 kg

DRUGS (7)
  1. FORTEO [Suspect]
     Indication: OSTEOPOROSIS
     Dosage: 20 UG, DAILY (1/D)
     Route: 058
     Dates: start: 20070204, end: 20070405
  2. PREDNISOLONE [Concomitant]
     Indication: POLYARTHRITIS
     Dosage: 5 MG, DAILY (1/D)
     Route: 048
     Dates: start: 20020101
  3. TENORMIN [Concomitant]
     Indication: HYPERTENSION
     Dosage: 50 MG, DAILY (1/D)
     Route: 048
     Dates: start: 20020101
  4. DURAGESIC-100 [Concomitant]
     Indication: OSTEOPOROSIS
     Dosage: 25 UG, EVERY HOUR
     Route: 048
     Dates: start: 20050101
  5. PERINDOPRIL ERBUMINE [Concomitant]
     Indication: HYPERTENSION
     Dosage: 4 MG, DAILY (1/D)
     Route: 048
     Dates: start: 20050101
  6. LEDERTREXATE [Concomitant]
     Indication: POLYARTHRITIS
     Dosage: 5 MG, WEEKLY (1/W)
     Route: 048
     Dates: start: 20020101
  7. ENBREL [Concomitant]
     Indication: POLYARTHRITIS
     Dosage: 25 MG, 2/W
     Route: 048
     Dates: start: 20020101

REACTIONS (1)
  - CEREBRAL HAEMORRHAGE [None]
